FAERS Safety Report 8469183 (Version 3)
Quarter: 2012Q4

REPORT INFORMATION
  Report Type: 
  Country: JP (occurrence: JP)
  Receive Date: 20120321
  Receipt Date: 20121105
  Transmission Date: 20130627
  Serious: Yes (Other)
  Sender: FDA-Public Use
  Company Number: JP-JNJFOC-20120307797

PATIENT
  Age: 56 Year
  Sex: Male

DRUGS (4)
  1. TRAMCET [Suspect]
     Indication: PAIN
     Dosage: 4 df x 1 per 1 day
     Route: 048
     Dates: start: 20120227, end: 20120228
  2. CISPLATIN [Suspect]
     Indication: CHEMOTHERAPY
     Route: 041
  3. NAUZELIN [Concomitant]
     Indication: NAUSEA
     Dosage: 3 doses 1 per 1 day
     Route: 048
     Dates: start: 20120227
  4. GEMZAR [Concomitant]
     Indication: CHEMOTHERAPY
     Dosage: 3 DF x 1 per 1 day
     Route: 041

REACTIONS (2)
  - Renal impairment [Recovering/Resolving]
  - Nausea [Recovered/Resolved]
